FAERS Safety Report 5758880-3 (Version None)
Quarter: 2008Q2

REPORT INFORMATION
  Report Type: 
  Country: None (occurrence: None)
  Receive Date: 20080604
  Receipt Date: 20080521
  Transmission Date: 20081010
  Serious: Yes (Death, Hospitalization)
  Sender: FDA-Public Use
  Company Number: PHHO2005SG09248

PATIENT
  Sex: Male

DRUGS (8)
  1. GLEEVEC [Suspect]
     Indication: CHRONIC MYELOID LEUKAEMIA
     Dosage: 400 MG, QD
     Route: 048
     Dates: start: 20041228
  2. GLEEVEC [Suspect]
     Dosage: 600 MG, QD
     Route: 048
     Dates: start: 20050125, end: 20050519
  3. LACTULOSE [Concomitant]
  4. VITAMIN K TAB [Concomitant]
  5. PROTON PUMP INHIBITORS [Concomitant]
  6. ANTIBIOTICS [Concomitant]
     Indication: PROPHYLAXIS
  7. LAMIVUDINE [Concomitant]
     Indication: HEPATITIS B VIRUS
  8. ACYCLOVIR SODIUM [Concomitant]
     Indication: HERPES SIMPLEX

REACTIONS (18)
  - ACTIVATED PARTIAL THROMBOPLASTIN TIME PROLONGED [None]
  - ACUTE HEPATIC FAILURE [None]
  - ALANINE AMINOTRANSFERASE INCREASED [None]
  - ASPARTATE AMINOTRANSFERASE INCREASED [None]
  - BLOOD ALBUMIN DECREASED [None]
  - BLOOD BILIRUBIN INCREASED [None]
  - HAEMOGLOBIN DECREASED [None]
  - HBV DNA INCREASED [None]
  - HEPATIC ENCEPHALOPATHY [None]
  - HEPATIC NECROSIS [None]
  - HEPATITIS B SURFACE ANTIGEN POSITIVE [None]
  - HERPES SIMPLEX [None]
  - JAUNDICE [None]
  - LETHARGY [None]
  - PERIORBITAL OEDEMA [None]
  - PLATELET COUNT DECREASED [None]
  - PROTHROMBIN TIME SHORTENED [None]
  - PYREXIA [None]
